FAERS Safety Report 10607704 (Version 2)
Quarter: 2014Q4

REPORT INFORMATION
  Report Type: Report from Study
  Country: US (occurrence: US)
  Receive Date: 20141125
  Receipt Date: 20141125
  Transmission Date: 20150529
  Serious: Yes (Other)
  Sender: FDA-Public Use
  Company Number: PHEH2014US006344

PATIENT
  Sex: Female
  Weight: 65.31 kg

DRUGS (1)
  1. GILENYA [Suspect]
     Active Substance: FINGOLIMOD HYDROCHLORIDE
     Indication: MULTIPLE SCLEROSIS
     Dosage: 0.5 MG, QD
     Route: 048
     Dates: start: 20110531

REACTIONS (15)
  - Constipation [Unknown]
  - Back pain [Unknown]
  - Hearing impaired [Unknown]
  - Sinus disorder [Unknown]
  - Cognitive disorder [Unknown]
  - White blood cell count decreased [Unknown]
  - Muscular weakness [Unknown]
  - Paraparesis [Unknown]
  - Dysphagia [Unknown]
  - Paraesthesia [Unknown]
  - Libido decreased [Unknown]
  - Memory impairment [Unknown]
  - Anxiety [Unknown]
  - Blood pressure increased [Unknown]
  - Balance disorder [Unknown]
